FAERS Safety Report 21422277 (Version 3)
Quarter: 2022Q4

REPORT INFORMATION
  Report Type: Spontaneous
  Country: AU (occurrence: AU)
  Receive Date: 20221007
  Receipt Date: 20221114
  Transmission Date: 20230113
  Serious: Yes (Other)
  Sender: FDA-Public Use
  Company Number: AU-ABBVIE-22K-008-4416573-00

PATIENT
  Age: 44 Year
  Sex: Female

DRUGS (4)
  1. HUMIRA [Suspect]
     Active Substance: ADALIMUMAB
     Indication: Peripheral spondyloarthritis
     Route: 058
  2. HUMIRA [Suspect]
     Active Substance: ADALIMUMAB
     Indication: Arthritis
  3. SECUKINUMAB [Suspect]
     Active Substance: SECUKINUMAB
     Indication: Peripheral spondyloarthritis
     Route: 065
  4. GOLIMUMAB [Suspect]
     Active Substance: GOLIMUMAB
     Indication: Peripheral spondyloarthritis
     Route: 065

REACTIONS (5)
  - Chronic pigmented purpura [Recovered/Resolved]
  - Chronic pigmented purpura [Recovered/Resolved]
  - Off label use [Unknown]
  - Chronic pigmented purpura [Unknown]
  - Neutropenia [Recovered/Resolved]
